FAERS Safety Report 5023203-4 (Version None)
Quarter: 2006Q2

REPORT INFORMATION
  Report Type: 
  Country: None (occurrence: None)
  Receive Date: 20060428
  Receipt Date: 20060328
  Transmission Date: 20061013
  Serious: No
  Sender: FDA-Public Use
  Company Number: 012199

PATIENT
  Age: 36 Year
  Sex: Male

DRUGS (3)
  1. PRIALT [Suspect]
     Indication: POST LAMINECTOMY SYNDROME
     Dosage: UNK UG, ONCE/HOUR, INTRATHECAL
     Route: 037
  2. BUPIVICAINE (BUPIVICAINE) [Concomitant]
  3. HYDROMORPHONE HCL [Concomitant]

REACTIONS (3)
  - BLOOD TESTOSTERONE DECREASED [None]
  - DRUG INEFFECTIVE [None]
  - FEELING ABNORMAL [None]
